FAERS Safety Report 5622462-4 (Version None)
Quarter: 2008Q1

REPORT INFORMATION
  Report Type: 
  Country: None (occurrence: None)
  Receive Date: 20080211
  Receipt Date: 20080130
  Transmission Date: 20080703
  Serious: Yes (Other)
  Sender: FDA-Public Use
  Company Number: DE-PFIZER INC-2008010163

PATIENT
  Age: 50 Year
  Sex: Female

DRUGS (1)
  1. ZITHROMAX [Suspect]
     Indication: INFECTION
     Dosage: DAILY DOSE:500MG
     Route: 048

REACTIONS (4)
  - ANXIETY [None]
  - DEPERSONALISATION [None]
  - DIZZINESS [None]
  - NAUSEA [None]
